FAERS Safety Report 5365888-9 (Version None)
Quarter: 2007Q2

REPORT INFORMATION
  Report Type: 
  Country: None (occurrence: None)
  Receive Date: 20070621
  Receipt Date: 20070613
  Transmission Date: 20071010
  Serious: Yes (Hospitalization)
  Sender: FDA-Public Use
  Company Number: JP-MERCK-0706USA02688

PATIENT
  Age: 60 Year
  Sex: Female

DRUGS (2)
  1. FOSAMAX [Suspect]
     Indication: OSTEOPOROSIS
     Route: 048
  2. DEPAS [Concomitant]
     Route: 048

REACTIONS (4)
  - CHILLS [None]
  - HYPERHIDROSIS [None]
  - HYPOTHERMIA [None]
  - PYREXIA [None]
